FAERS Safety Report 25272219 (Version 1)
Quarter: 2025Q2

REPORT INFORMATION
  Report Type: Spontaneous
  Country: US (occurrence: US)
  Receive Date: 20250506
  Receipt Date: 20250506
  Transmission Date: 20250716
  Serious: No
  Sender: ALCON
  Company Number: US-ALCON LABORATORIES-ALC2024US002692

PATIENT
  Age: 65 Year
  Sex: Male

DRUGS (2)
  1. ROCKLATAN [Suspect]
     Active Substance: LATANOPROST\NETARSUDIL MESYLATE
     Indication: Glaucoma
     Route: 047
     Dates: start: 20240522
  2. Bausch + Lomb Moisture Eyes [Concomitant]
     Indication: Product used for unknown indication
     Route: 047

REACTIONS (2)
  - Eye irritation [Recovering/Resolving]
  - Ocular hyperaemia [Recovered/Resolved]

NARRATIVE: CASE EVENT DATE: 20240522
